FAERS Safety Report 19037300 (Version 1)
Quarter: 2021Q1

REPORT INFORMATION
  Report Type: Spontaneous
  Country: US (occurrence: US)
  Receive Date: 20210322
  Receipt Date: 20210322
  Transmission Date: 20210420
  Serious: No
  Sender: FDA-Public Use
  Company Number: US-ASTRAZENECA-2021A084866

PATIENT
  Age: 17544 Day
  Sex: Female
  Weight: 111.1 kg

DRUGS (2)
  1. FASENRA [Suspect]
     Active Substance: BENRALIZUMAB
     Indication: ASTHMA
     Dosage: 30MG/ML EVERY EIGHT WEEKS
     Route: 058
     Dates: start: 2020
  2. FASENRA [Suspect]
     Active Substance: BENRALIZUMAB
     Indication: WHEEZING
     Dosage: 30MG/ML EVERY EIGHT WEEKS
     Route: 058
     Dates: start: 2020

REACTIONS (11)
  - Sleep disorder due to general medical condition, insomnia type [Not Recovered/Not Resolved]
  - Injection site swelling [Unknown]
  - Injection site mass [Recovered/Resolved]
  - Injection site pain [Recovered/Resolved]
  - Incorrect dose administered by device [Not Recovered/Not Resolved]
  - Cough [Not Recovered/Not Resolved]
  - Injection site bruising [Not Recovered/Not Resolved]
  - Asthma [Not Recovered/Not Resolved]
  - Inflammation [Not Recovered/Not Resolved]
  - Dyspnoea [Not Recovered/Not Resolved]
  - Device leakage [Unknown]

NARRATIVE: CASE EVENT DATE: 20210217
